FAERS Safety Report 14334450 (Version 1)
Quarter: 2017Q4

REPORT INFORMATION
  Report Type: Other
  Country: FR (occurrence: FR)
  Receive Date: 20171228
  Receipt Date: 20171228
  Transmission Date: 20180321
  Serious: Yes (Hospitalization)
  Sender: FDA-Public Use
  Company Number: FR-VALIDUS PHARMACEUTICALS LLC-FR-2017VAL001703

PATIENT
  Age: 89 Year
  Sex: Male

DRUGS (3)
  1. RAMIPRIL. [Suspect]
     Active Substance: RAMIPRIL
     Indication: MYOCARDIAL ISCHAEMIA
     Dosage: 1.25 MG, UNK
     Route: 048
     Dates: end: 20171029
  2. FUROSEMIDE. [Suspect]
     Active Substance: FUROSEMIDE
     Indication: MYOCARDIAL ISCHAEMIA
     Dosage: 20 G, UNK
     Route: 048
     Dates: end: 20171029
  3. BISOPROLOL [Suspect]
     Active Substance: BISOPROLOL
     Indication: MYOCARDIAL ISCHAEMIA
     Dosage: 1 DF, UNK
     Route: 048
     Dates: end: 20171029

REACTIONS (3)
  - Renal failure [Recovered/Resolved]
  - Bradycardia [Recovered/Resolved]
  - Hypotension [Recovered/Resolved]

NARRATIVE: CASE EVENT DATE: 20171029
